FAERS Safety Report 22714856 (Version 5)
Quarter: 2023Q4

REPORT INFORMATION
  Report Type: Spontaneous
  Country: PT (occurrence: PT)
  Receive Date: 20230718
  Receipt Date: 20231226
  Transmission Date: 20240109
  Serious: Yes (Other)
  Sender: FDA-Public Use
  Company Number: None

PATIENT
  Age: 46 Year
  Sex: Male

DRUGS (3)
  1. SKYRIZI [Suspect]
     Active Substance: RISANKIZUMAB-RZAA
     Indication: Psoriasis
     Dosage: TIME INTERVAL: TOTAL: 150 MG GIVEN BY SUBCUTANEOUS INJECTION AT WEEK 0
     Route: 058
     Dates: start: 20220505, end: 20220505
  2. SKYRIZI [Suspect]
     Active Substance: RISANKIZUMAB-RZAA
     Dosage: TIME INTERVAL: TOTAL: 150 MG GIVEN BY SUBCUTANEOUS INJECTION AT WEEK 4
     Route: 058
     Dates: start: 202206, end: 202206
  3. SKYRIZI [Suspect]
     Active Substance: RISANKIZUMAB-RZAA
     Dosage: 150 MG GIVEN BY SUBCUTANEOUS INJECTION AT EVERY WEEK 12
     Route: 058
     Dates: start: 202207

REACTIONS (3)
  - Dysuria [Not Recovered/Not Resolved]
  - Constipation [Not Recovered/Not Resolved]
  - Haematuria [Unknown]

NARRATIVE: CASE EVENT DATE: 20230110
